FAERS Safety Report 9412688 (Version 3)
Quarter: 2013Q4

REPORT INFORMATION
  Report Type: Spontaneous
  Country: JP (occurrence: JP)
  Receive Date: 20130722
  Receipt Date: 20131119
  Transmission Date: 20140711
  Serious: Yes (Death, Hospitalization, Other)
  Sender: FDA-Public Use
  Company Number: JP-TEVA-420494USA

PATIENT
  Age: 58 Year
  Sex: Male

DRUGS (18)
  1. BENDAMUSTINE [Suspect]
     Indication: B-CELL LYMPHOMA
     Dosage: UID/QD
     Route: 042
     Dates: start: 20130220, end: 20130221
  2. BENDAMUSTINE [Suspect]
     Dosage: UID/QD
     Route: 042
     Dates: start: 20130417, end: 20130418
  3. ALLOPURINOL [Concomitant]
     Indication: PRODUCT USED FOR UNKNOWN INDICATION
     Dates: start: 20130205, end: 20130805
  4. ASPIRIN [Concomitant]
     Indication: PRODUCT USED FOR UNKNOWN INDICATION
     Dates: start: 20130205, end: 20130805
  5. AMLODIPINE BESILATE [Concomitant]
     Indication: PRODUCT USED FOR UNKNOWN INDICATION
     Dates: start: 20130205, end: 20130501
  6. MECOBALAMIN [Concomitant]
     Indication: PRODUCT USED FOR UNKNOWN INDICATION
     Dates: start: 20130205, end: 20130218
  7. INDAPAMIDE [Concomitant]
     Indication: PRODUCT USED FOR UNKNOWN INDICATION
     Dates: start: 20130205, end: 20130501
  8. SULFAMETHOXAZOLE W/TRIMETHOPRIM [Concomitant]
     Indication: PRODUCT USED FOR UNKNOWN INDICATION
     Dates: start: 20130225, end: 20130310
  9. MINOCYCLINE [Concomitant]
     Indication: PRODUCT USED FOR UNKNOWN INDICATION
     Dates: start: 20130510, end: 20130516
  10. DEXAMETHASONE [Concomitant]
     Indication: PRODUCT USED FOR UNKNOWN INDICATION
     Dates: start: 20130220, end: 20130221
  11. DEXAMETHASONE [Concomitant]
     Dates: start: 20130417, end: 20130418
  12. LENOGRASTIM [Concomitant]
     Indication: PRODUCT USED FOR UNKNOWN INDICATION
     Dates: start: 20130225, end: 20130227
  13. LENOGRASTIM [Concomitant]
     Dates: start: 20130315, end: 20130316
  14. LENOGRASTIM [Concomitant]
     Dates: start: 20130505
  15. LENOGRASTIM [Concomitant]
     Dates: start: 20130510
  16. LENOGRASTIM [Concomitant]
     Dates: start: 20130517
  17. LENOGRASTIM [Concomitant]
     Dates: start: 20130524
  18. MEROPENEM [Concomitant]
     Indication: PRODUCT USED FOR UNKNOWN INDICATION
     Dates: start: 20130424, end: 20130428

REACTIONS (6)
  - Pancytopenia [Recovered/Resolved]
  - Pneumonia [Fatal]
  - Disease progression [Fatal]
  - Cytomegalovirus infection [Recovering/Resolving]
  - Stomatitis [Recovering/Resolving]
  - Rash [Recovering/Resolving]
